FAERS Safety Report 9631282 (Version 1)
Quarter: 2013Q4

REPORT INFORMATION
  Report Type: Spontaneous
  Country: GB (occurrence: None)
  Receive Date: 20131015
  Receipt Date: 20131015
  Transmission Date: 20140711
  Serious: Yes (Other)
  Sender: FDA-Public Use
  Company Number: KAD201310-001324

PATIENT
  Age: 45 Year
  Sex: Male

DRUGS (3)
  1. RIBAVIRIN (RIBAVIRIN) [Suspect]
     Indication: HEPATITIS C
     Dosage: TWICE DAILY (SINGLE DOSE), PO
  2. INTERFERON ALFA-2A [Suspect]
     Indication: HEPATITIS C
     Dosage: ONCE WEEKLY, SUBCUTANEOUS
     Dates: start: 20130108
  3. INCIVO (TELAPREVIR) [Suspect]
     Route: 048
     Dates: start: 20130108

REACTIONS (8)
  - Rash [None]
  - Constipation [None]
  - Headache [None]
  - Dyspnoea [None]
  - Breath odour [None]
  - Anaemia [None]
  - Pruritus [None]
  - Fatigue [None]
